FAERS Safety Report 8502621-3 (Version None)
Quarter: 2012Q3

REPORT INFORMATION
  Report Type: 
  Country: None (occurrence: None)
  Receive Date: 20120711
  Receipt Date: 20120706
  Transmission Date: 20120928
  Serious: Yes (Hospitalization, Other)
  Sender: FDA-Public Use
  Company Number: JP-B.I. PHARMACEUTICALS,INC./RIDGEFIELD-2012-BP-15200NB

PATIENT
  Sex: Male

DRUGS (6)
  1. FLIVASTATIN SODIUM [Concomitant]
     Indication: BENIGN PROSTATIC HYPERPLASIA
     Route: 048
  2. SPIRIVA [Suspect]
     Indication: CHRONIC OBSTRUCTIVE PULMONARY DISEASE
     Dosage: 5 MCG
     Route: 055
     Dates: start: 20110729
  3. ALOSENN [Concomitant]
     Indication: CONSTIPATION
     Route: 048
  4. CERNILTON [Concomitant]
     Indication: BENIGN PROSTATIC HYPERPLASIA
     Route: 048
  5. XALATAN [Concomitant]
     Indication: OCULAR HYPERTENSION
     Route: 031
  6. SM [Concomitant]
     Indication: ABDOMINAL DISCOMFORT
     Route: 048

REACTIONS (1)
  - PROSTATE CANCER [None]
